FAERS Safety Report 8843531 (Version 1)
Quarter: 2012Q4

REPORT INFORMATION
  Report Type: 
  Country: US (occurrence: US)
  Receive Date: 20121016
  Receipt Date: 20121016
  Transmission Date: 20130627
  Serious: No
  Sender: FDA-Public Use
  Company Number: US-VERTEX PHARMACEUTICAL INC.-2012-022301

PATIENT
  Sex: Male

DRUGS (6)
  1. VX-950 [Suspect]
     Indication: HEPATITIS C
     Dosage: 750 mg, tid
     Route: 048
  2. PEGASYS [Concomitant]
     Indication: HEPATITIS C
     Dosage: 180 mcg/m
  3. RIBAVIRIN [Concomitant]
     Indication: HEPATITIS C
     Dosage: 200 mg, UNK
  4. SPIRIVA HANDIHALER [Concomitant]
  5. ALBUTEROL                          /00139501/ [Concomitant]
     Dosage: 90 ?g, UNK
  6. PROTONIX [Concomitant]
     Dosage: 20 mg, UNK

REACTIONS (1)
  - Pneumonia [Unknown]
